FAERS Safety Report 10241908 (Version 2)
Quarter: 2014Q3

REPORT INFORMATION
  Report Type: Spontaneous
  Country: JP (occurrence: JP)
  Receive Date: 20140617
  Receipt Date: 20140813
  Transmission Date: 20150326
  Serious: Yes (Hospitalization)
  Sender: FDA-Public Use
  Company Number: JP-GLAXOSMITHKLINE-B1002202A

PATIENT
  Age: 1 Year
  Sex: Male

DRUGS (6)
  1. LAMICTAL [Suspect]
     Active Substance: LAMOTRIGINE
     Indication: INFANTILE SPASMS
     Dosage: 18MG TWICE PER DAY
     Route: 048
  2. DEPAKENE [Concomitant]
     Active Substance: VALPROIC ACID
     Dosage: 175MG TWICE PER DAY
     Route: 048
  3. LAMICTAL [Suspect]
     Active Substance: LAMOTRIGINE
     Indication: INFANTILE SPASMS
     Dosage: 225MG TWICE PER DAY
     Route: 048
     Dates: start: 20140530, end: 20140603
  4. L CARTIN [Concomitant]
     Dosage: 1.5ML TWICE PER DAY
     Route: 048
  5. POTASSIUM BROMIDE [Concomitant]
     Active Substance: POTASSIUM BROMIDE
     Dosage: .25G TWICE PER DAY
     Route: 048
  6. BENZALIN [Concomitant]
     Active Substance: NITRAZEPAM
     Dosage: 1.6MG TWICE PER DAY
     Route: 048

REACTIONS (10)
  - Dyskinesia [Unknown]
  - Respiratory disorder [Recovered/Resolved]
  - Nystagmus [Unknown]
  - Irritability [Recovered/Resolved]
  - Mood altered [Unknown]
  - Pneumonia aspiration [Recovered/Resolved]
  - Overdose [Unknown]
  - Secretion discharge [Unknown]
  - Vomiting [Recovered/Resolved]
  - Agitation [Recovered/Resolved]

NARRATIVE: CASE EVENT DATE: 20140531
